FAERS Safety Report 16428257 (Version 2)
Quarter: 2019Q3

REPORT INFORMATION
  Report Type: Spontaneous
  Country: US (occurrence: US)
  Receive Date: 20190613
  Receipt Date: 20190705
  Transmission Date: 20191004
  Serious: No
  Sender: FDA-Public Use
  Company Number: US-BAUSCH-BL-2019-016507

PATIENT
  Age: 61 Year
  Sex: Female
  Weight: 54.48 kg

DRUGS (1)
  1. PLENVU [Suspect]
     Active Substance: ASCORBIC ACID\POLYETHYLENE GLYCOL 3350\POTASSIUM CHLORIDE\SODIUM ASCORBATE\SODIUM CHLORIDE\SODIUM SULFATE
     Indication: BOWEL PREPARATION
     Dosage: TOTAL QUANTITY: 1 LITRE, DIVIDED DOSE
     Route: 065
     Dates: start: 20190604, end: 20190604

REACTIONS (6)
  - Dehydration [Unknown]
  - Asthenia [Unknown]
  - Vomiting projectile [Recovered/Resolved]
  - Bradyphrenia [Unknown]
  - Hypersomnia [Unknown]
  - Ill-defined disorder [Unknown]

NARRATIVE: CASE EVENT DATE: 20190604
